FAERS Safety Report 6050800-X (Version None)
Quarter: 2009Q1

REPORT INFORMATION
  Report Type: 
  Country: None (occurrence: None)
  Receive Date: 20090126
  Receipt Date: 20080214
  Transmission Date: 20090719
  Serious: No
  Sender: FDA-Public Use
  Company Number: US-ABBOTT-08P-163-0438561-00

PATIENT
  Sex: Male
  Weight: 80.358 kg

DRUGS (2)
  1. TRICOR [Suspect]
     Indication: HYPERLIPIDAEMIA
     Route: 048
     Dates: start: 20030101, end: 20030101
  2. TRICOR [Suspect]
     Dates: start: 20071101, end: 20071101

REACTIONS (1)
  - MUSCLE SPASMS [None]
